FAERS Safety Report 4328707-5 (Version None)
Quarter: 2004Q1

REPORT INFORMATION
  Report Type: 
  Country: None (occurrence: None)
  Receive Date: 20040329
  Receipt Date: 20031202
  Transmission Date: 20041129
  Serious: Yes (Hospitalization)
  Sender: FDA-Public Use
  Company Number: 03P-163-0243441-00

PATIENT
  Age: 61 Year
  Sex: Male
  Weight: 83.9154 kg

DRUGS (6)
  1. HUMIRA [Suspect]
     Indication: RHEUMATOID ARTHRITIS
     Dosage: 40 MG, 1 IN 2 WK, SUBCUTANEOUS
     Route: 058
     Dates: start: 20031117, end: 20031117
  2. BLOOD PRESSURE MEDICATIONS [Concomitant]
  3. PREDNISONE [Concomitant]
  4. ANTIDEPRESSANT MEDICATION [Concomitant]
  5. INHALER [Concomitant]
  6. OXYCODONE [Concomitant]

REACTIONS (4)
  - CHEST PAIN [None]
  - DIZZINESS [None]
  - OXYGEN SATURATION DECREASED [None]
  - PALPITATIONS [None]
